FAERS Safety Report 19815956 (Version 1)
Quarter: 2021Q3

REPORT INFORMATION
  Report Type: Spontaneous
  Country: FR (occurrence: FR)
  Receive Date: 20210909
  Receipt Date: 20210909
  Transmission Date: 20211014
  Serious: Yes (Other)
  Sender: FDA-Public Use
  Company Number: FR-ALSI-2021000269

PATIENT
  Age: 18 Year
  Sex: Male

DRUGS (3)
  1. CODEINE [Concomitant]
     Active Substance: CODEINE
     Route: 048
  2. NITROUS OXIDE. [Suspect]
     Active Substance: NITROUS OXIDE
     Indication: DRUG DEPENDENCE
     Route: 055
  3. BENZODIAZEPINE [Concomitant]
     Active Substance: BENZODIAZEPINE
     Route: 048

REACTIONS (3)
  - Paraesthesia [Unknown]
  - Aggression [Unknown]
  - Drug dependence [Not Recovered/Not Resolved]
